FAERS Safety Report 23582744 (Version 1)
Quarter: 2024Q1

REPORT INFORMATION
  Report Type: Spontaneous
  Country: FR (occurrence: FR)
  Receive Date: 20240229
  Receipt Date: 20240229
  Transmission Date: 20240410
  Serious: Yes (Death, Other)
  Sender: FDA-Public Use
  Company Number: FR-AFSSAPS-PV2024000149

PATIENT
  Age: 3 Month
  Sex: Female
  Weight: 3.4 kg

DRUGS (5)
  1. FLECAINIDE ACETATE [Suspect]
     Active Substance: FLECAINIDE ACETATE
     Indication: Long QT syndrome congenital
     Dosage: 2.9 MILLIGRAM/KILOGRAM
     Route: 048
     Dates: start: 20240122, end: 20240122
  2. NADOLOL [Suspect]
     Active Substance: NADOLOL
     Indication: Long QT syndrome congenital
     Dosage: 15 MILLIGRAM, TWO TIMES A DAY (1.5 ML)
     Route: 048
     Dates: start: 20231122, end: 20240122
  3. NADOLOL [Suspect]
     Active Substance: NADOLOL
     Dosage: 2.5 MILLIGRAM, TWO TIMES A DAY
     Route: 048
     Dates: start: 20231123, end: 20231125
  4. NADOLOL [Suspect]
     Active Substance: NADOLOL
     Dosage: 8 MILLIGRAM, TWO TIMES A DAY
     Route: 048
     Dates: start: 20231125, end: 20231212
  5. NADOLOL [Suspect]
     Active Substance: NADOLOL
     Dosage: 10 MILLIGRAM, TWO TIMES A DAY (1 ML)
     Route: 048
     Dates: start: 20231212, end: 20240122

REACTIONS (1)
  - Cardiogenic shock [Fatal]

NARRATIVE: CASE EVENT DATE: 20240122
